FAERS Safety Report 4297017-7 (Version None)
Quarter: 2004Q1

REPORT INFORMATION
  Report Type: 
  Country: None (occurrence: None)
  Receive Date: 20040217
  Receipt Date: 20020103
  Transmission Date: 20041129
  Serious: Yes (Other)
  Sender: FDA-Public Use
  Company Number: PHEH2002US00468

PATIENT
  Age: 70 Year
  Sex: Female
  Weight: 62 kg

DRUGS (10)
  1. SYNTHROID [Concomitant]
  2. LANOXIN [Concomitant]
  3. GEMFIBROZIL [Concomitant]
  4. PEPCID [Concomitant]
  5. GLUCOSAMINE W/CHONDROITIN [Concomitant]
  6. GINKGO BILOBA [Concomitant]
  7. FOSAMAX [Concomitant]
  8. DOXYCYCLINE [Concomitant]
     Indication: SINUSITIS
  9. ASPIRIN [Concomitant]
  10. DIOVAN [Suspect]
     Dosage: 160 MG, QD
     Route: 048
     Dates: start: 20010420, end: 20010605

REACTIONS (12)
  - ANTINUCLEAR ANTIBODY POSITIVE [None]
  - ARTHRALGIA [None]
  - BURSITIS [None]
  - CARPAL TUNNEL SYNDROME [None]
  - CONDITION AGGRAVATED [None]
  - FATIGUE [None]
  - HYPOAESTHESIA [None]
  - NEUROPATHY [None]
  - OEDEMA PERIPHERAL [None]
  - PAIN IN EXTREMITY [None]
  - PERONEAL NERVE PALSY [None]
  - TENDERNESS [None]
